FAERS Safety Report 4356094-5 (Version None)
Quarter: 2004Q2

REPORT INFORMATION
  Report Type: 
  Country: None (occurrence: None)
  Receive Date: 20040511
  Receipt Date: 20040324
  Transmission Date: 20050107
  Serious: Yes (Life-Threatening, Hospitalization, Other)
  Sender: FDA-Public Use
  Company Number: US-GLAXOSMITHKLINE-A0504328A

PATIENT
  Age: 28 Year
  Sex: Female

DRUGS (2)
  1. PAXIL [Suspect]
     Indication: GENERALISED ANXIETY DISORDER
     Dosage: 12.5MG PER DAY
     Route: 048
     Dates: start: 20031013, end: 20031026
  2. KLONOPIN [Concomitant]

REACTIONS (13)
  - AGGRESSION [None]
  - ANOREXIA [None]
  - ANXIETY [None]
  - DRY MOUTH [None]
  - FEAR [None]
  - INSOMNIA [None]
  - NAUSEA [None]
  - NEGATIVE THOUGHTS [None]
  - PANIC ATTACK [None]
  - SELF MUTILATION [None]
  - SELF-INJURIOUS IDEATION [None]
  - SUICIDAL IDEATION [None]
  - SUICIDE ATTEMPT [None]
